FAERS Safety Report 16844903 (Version 1)
Quarter: 2019Q3

REPORT INFORMATION
  Report Type: Spontaneous
  Country: US (occurrence: US)
  Receive Date: 20190924
  Receipt Date: 20190924
  Transmission Date: 20191005
  Serious: No
  Sender: FDA-Public Use
  Company Number: US-PFIZER INC-2019407936

PATIENT
  Age: 62 Year
  Sex: Female

DRUGS (12)
  1. SULFATHIAZOLE [Suspect]
     Active Substance: SULFATHIAZOLE
     Dosage: UNK
  2. HYDROCORTISONE/NEOMYCIN SULFATE/POLYMYXIN B SULFATE [Suspect]
     Active Substance: HYDROCORTISONE\NEOMYCIN SULFATE\POLYMYXIN B SULFATE
     Dosage: UNK
  3. SULFACET [Suspect]
     Active Substance: SULFACETAMIDE
     Dosage: UNK
  4. SULFABENZAMIDA [Suspect]
     Active Substance: SULFABENZAMIDE
     Dosage: UNK
  5. DROPERIDOL. [Suspect]
     Active Substance: DROPERIDOL
     Dosage: UNK
  6. NIFEDIPINE. [Suspect]
     Active Substance: NIFEDIPINE
     Dosage: UNK
  7. ATROPINE SULFATE. [Suspect]
     Active Substance: ATROPINE SULFATE
     Dosage: UNK
  8. LINZESS [Suspect]
     Active Substance: LINACLOTIDE
     Dosage: UNK
  9. LOMOTIL [Suspect]
     Active Substance: ATROPINE SULFATE\DIPHENOXYLATE HYDROCHLORIDE
     Dosage: UNK
  10. VALSARTAN. [Suspect]
     Active Substance: VALSARTAN
     Dosage: UNK
  11. QUINAPRIL. [Suspect]
     Active Substance: QUINAPRIL
     Dosage: UNK
  12. UREA. [Suspect]
     Active Substance: UREA
     Dosage: UNK

REACTIONS (1)
  - Drug hypersensitivity [Unknown]
